FAERS Safety Report 7851618-5 (Version None)
Quarter: 2011Q4

REPORT INFORMATION
  Report Type: 
  Country: None (occurrence: None)
  Receive Date: 20111026
  Receipt Date: 20111017
  Transmission Date: 20120403
  Serious: Yes (Hospitalization, Other)
  Sender: FDA-Public Use
  Company Number: US-US-EMD SERONO, INC.-238783K09USA

PATIENT
  Sex: Male
  Weight: 75 kg

DRUGS (7)
  1. NEURONTIN [Concomitant]
     Indication: NEUROPATHY PERIPHERAL
  2. REBIF [Suspect]
     Dates: start: 20100101, end: 20101025
  3. REBIF [Suspect]
  4. NEURONTIN [Concomitant]
     Indication: TREMOR
     Dates: start: 20090829
  5. ENTOCORT EC [Concomitant]
     Indication: FREQUENT BOWEL MOVEMENTS
     Dates: start: 20090101
  6. REBIF [Suspect]
     Indication: MULTIPLE SCLEROSIS
     Route: 058
     Dates: start: 20090331, end: 20100101
  7. LISINOPRIL [Concomitant]
     Indication: HYPERTENSION

REACTIONS (10)
  - HEART RATE DECREASED [None]
  - CARDIOMEGALY [None]
  - LABORATORY TEST ABNORMAL [None]
  - BLOOD POTASSIUM DECREASED [None]
  - HYPERTENSION [None]
  - FATIGUE [None]
  - HEART RATE INCREASED [None]
  - MUSCULAR WEAKNESS [None]
  - DEPRESSION [None]
  - NEUROPATHY PERIPHERAL [None]
